FAERS Safety Report 19095915 (Version 1)
Quarter: 2021Q2

REPORT INFORMATION
  Report Type: Report from Study
  Country: BE (occurrence: BE)
  Receive Date: 20210406
  Receipt Date: 20210406
  Transmission Date: 20210717
  Serious: Yes (Other)
  Sender: FDA-Public Use
  Company Number: NVSC2020BE141670

PATIENT
  Sex: Female

DRUGS (2)
  1. TRAMETINIB [Suspect]
     Active Substance: TRAMETINIB
     Indication: OVARIAN CANCER
     Dosage: 2 MG
     Route: 065
  2. TRAMETINIB [Suspect]
     Active Substance: TRAMETINIB
     Dosage: 0.5 MG, TID
     Route: 065
     Dates: end: 202008

REACTIONS (7)
  - Oedema [Unknown]
  - Asthenia [Unknown]
  - Neuropathy peripheral [Unknown]
  - Rash [Unknown]
  - Diarrhoea [Unknown]
  - Mucosal inflammation [Unknown]
  - Alopecia [Unknown]
